FAERS Safety Report 9429583 (Version 1)
Quarter: 2013Q3

REPORT INFORMATION
  Report Type: Spontaneous
  Country: US (occurrence: US)
  Receive Date: 20130730
  Receipt Date: 20130730
  Transmission Date: 20140515
  Serious: No
  Sender: FDA-Public Use
  Company Number: US-ABBOTT-13P-163-1065753-00

PATIENT
  Sex: Female
  Weight: 70.37 kg

DRUGS (7)
  1. NIASPAN (COATED) [Suspect]
     Indication: BLOOD CHOLESTEROL INCREASED
     Dates: start: 201210
  2. ASPIRIN [Concomitant]
     Indication: PRODUCT USED FOR UNKNOWN INDICATION
     Dates: start: 201210
  3. LEVOTHYROXINE [Concomitant]
     Indication: THYROID DISORDER
  4. ATORVASTATIN [Concomitant]
     Indication: BLOOD CHOLESTEROL INCREASED
  5. VITAMIN B 12 [Concomitant]
     Indication: VITAMIN B12 DEFICIENCY
     Route: 030
     Dates: start: 2011
  6. VITAMIN D [Concomitant]
     Indication: SUPPLEMENTATION THERAPY
  7. FISH OIL [Concomitant]
     Indication: SUPPLEMENTATION THERAPY

REACTIONS (3)
  - Product quality issue [Unknown]
  - Flushing [Recovered/Resolved]
  - Skin burning sensation [Recovered/Resolved]
